FAERS Safety Report 14183417 (Version 1)
Quarter: 2017Q4

REPORT INFORMATION
  Report Type: Spontaneous
  Country: JP (occurrence: JP)
  Receive Date: 20171113
  Receipt Date: 20171113
  Transmission Date: 20180321
  Serious: Yes (Other)
  Sender: FDA-Public Use
  Company Number: JP-EAGLE PHARMACEUTICALS, INC.-JP-2017EAG000142

PATIENT
  Age: 72 Year
  Sex: Male

DRUGS (5)
  1. CISPLATIN. [Suspect]
     Active Substance: CISPLATIN
     Indication: LUNG SQUAMOUS CELL CARCINOMA STAGE III
     Dosage: 40 MG/M2, DAYS 1 AND 8
  2. DOCETAXEL. [Suspect]
     Active Substance: DOCETAXEL
     Indication: LUNG SQUAMOUS CELL CARCINOMA STAGE III
     Dosage: 30 MG/M2, DAYS 1 AND 8
  3. RADIOTHERAPY [Suspect]
     Active Substance: RADIATION THERAPY
     Dosage: 60 GY
  4. RADIOTHERAPY [Suspect]
     Active Substance: RADIATION THERAPY
     Indication: LUNG SQUAMOUS CELL CARCINOMA STAGE III
     Dosage: 2 GY, UNK
  5. RADIOTHERAPY [Suspect]
     Active Substance: RADIATION THERAPY
     Dosage: 2 GY, EVERY OTHER DAY

REACTIONS (1)
  - Oesophagobronchial fistula [Not Recovered/Not Resolved]
